FAERS Safety Report 6380135-7 (Version None)
Quarter: 2009Q3

REPORT INFORMATION
  Report Type: 
  Country: None (occurrence: None)
  Receive Date: 20090929
  Receipt Date: 20070702
  Transmission Date: 20100115
  Serious: Yes (Other)
  Sender: FDA-Public Use
  Company Number: US-ASTRAZENECA-2006UW26710

PATIENT
  Age: 53 Year
  Sex: Female
  Weight: 93 kg

DRUGS (27)
  1. SEROQUEL [Suspect]
     Indication: SCHIZOPHRENIA
     Dosage: 25MG - 800MG
     Route: 048
     Dates: start: 20011029
  2. SEROQUEL [Suspect]
     Indication: DEPRESSION
     Dosage: 25MG - 800MG
     Route: 048
     Dates: start: 20011029
  3. SEROQUEL [Suspect]
     Dosage: 100-300 MG, 800 MG
     Route: 048
     Dates: start: 20040201
  4. SEROQUEL [Suspect]
     Dosage: 100-300 MG, 800 MG
     Route: 048
     Dates: start: 20040201
  5. HALDOL [Concomitant]
  6. RISPERDAL [Concomitant]
  7. STELAZINE [Concomitant]
  8. TRILAFON [Concomitant]
  9. ZYPREXA [Concomitant]
  10. DILANTIN [Concomitant]
     Dates: start: 19810118
  11. KEFLEX [Concomitant]
     Indication: INFECTION
     Dates: start: 19980812
  12. BENTYL [Concomitant]
     Indication: GASTROENTERITIS
     Dates: start: 19880812
  13. PHENERGAN [Concomitant]
     Indication: GASTROENTERITIS
     Dates: start: 19880812
  14. AMITRIPTYLINE [Concomitant]
     Indication: ANXIETY
     Dates: start: 19880914
  15. AMITRIPTYLINE [Concomitant]
     Indication: DEPRESSION
     Dates: start: 19880914
  16. TEGRETOL [Concomitant]
     Indication: CONVULSION
     Dosage: 500MG - 1800MG
     Route: 048
     Dates: start: 19850730
  17. XANAX [Concomitant]
     Indication: ANXIETY
     Dosage: 4MG - 5MG
     Dates: start: 19880914
  18. XANAX [Concomitant]
     Indication: DEPRESSION
     Dosage: 4MG - 5MG
     Dates: start: 19880914
  19. IMIPRAMINE [Concomitant]
     Indication: DEPRESSION
     Dosage: 150MG -200MG
     Dates: start: 19880927
  20. CLONOPIN [Concomitant]
     Indication: CONVULSION
     Dosage: 1MG EVERY MORNING AND AT NIGHT
     Dates: start: 19880927
  21. COGENTIN [Concomitant]
     Dosage: 1MG -4MG
     Dates: start: 19890613
  22. CHLORPROMAZINE [Concomitant]
     Indication: MENTAL DISORDER
     Dates: start: 19890613
  23. FLOXIN [Concomitant]
     Indication: BRONCHITIS
     Dates: start: 19920108
  24. DEPAKOTE [Concomitant]
     Dosage: 1000MG -2000MG
     Dates: start: 20011029
  25. PREVACID [Concomitant]
     Indication: GASTROOESOPHAGEAL REFLUX DISEASE
     Dosage: 30MG - 300MG
     Dates: start: 20011029
  26. LEVAQUIN [Concomitant]
     Indication: SINUSITIS
     Route: 048
     Dates: start: 20070323
  27. LUNESTA [Concomitant]
     Indication: INITIAL INSOMNIA
     Dosage: 2MG, ONE AT BEDTIME AS NEEDED
     Dates: start: 20071213

REACTIONS (2)
  - NEUROPATHY PERIPHERAL [None]
  - TYPE 2 DIABETES MELLITUS [None]
